FAERS Safety Report 6734040-4 (Version None)
Quarter: 2010Q2

REPORT INFORMATION
  Report Type: 
  Country: None (occurrence: None)
  Receive Date: 20100520
  Receipt Date: 20100512
  Transmission Date: 20101027
  Serious: Yes (Other)
  Sender: FDA-Public Use
  Company Number: US-ELI_LILLY_AND_COMPANY-US201005003576

PATIENT
  Sex: Female

DRUGS (2)
  1. HUMALOG [Suspect]
     Dosage: 18 U, 4/D
     Dates: start: 20010101
  2. LANTUS [Concomitant]
     Dosage: 38 U, EACH EVENING

REACTIONS (4)
  - BLINDNESS [None]
  - CATARACT [None]
  - CORNEAL TRANSPLANT [None]
  - DRUG DOSE OMISSION [None]
